FAERS Safety Report 6699045-0 (Version None)
Quarter: 2010Q2

REPORT INFORMATION
  Report Type: 
  Country: None (occurrence: None)
  Receive Date: 20100427
  Receipt Date: 20100420
  Transmission Date: 20101027
  Serious: Yes (Hospitalization)
  Sender: FDA-Public Use
  Company Number: JP-BRISTOL-MYERS SQUIBB COMPANY-15077795

PATIENT
  Age: 64 Year
  Sex: Female

DRUGS (5)
  1. ABILIFY [Suspect]
     Dosage: UNKNOWN-31MAR10=18MG 1-5APR10(5 DAYS)=20MG 6-7APR10(2 DAYS)=24MG 8-18APR10(11 DAYS)=30MG
     Route: 048
     Dates: end: 20100418
  2. DEPAKENE [Concomitant]
     Dosage: DF=TABS
     Dates: end: 20100418
  3. FLUNITRAZEPAM [Concomitant]
     Dosage: DF=TABS
     Dates: end: 20100418
  4. SODIUM PICOSULFATE [Concomitant]
     Dosage: DF=TABS
     Dates: end: 20100418
  5. SELENICA-R [Concomitant]
     Dates: end: 20100418

REACTIONS (2)
  - ALTERED STATE OF CONSCIOUSNESS [None]
  - PYREXIA [None]
